FAERS Safety Report 25636322 (Version 2)
Quarter: 2025Q3

REPORT INFORMATION
  Report Type: Report from Study
  Country: US (occurrence: US)
  Receive Date: 20250803
  Receipt Date: 20250922
  Transmission Date: 20251021
  Serious: Yes (Other)
  Sender: ALEXION PHARMACEUTICALS
  Company Number: US-AstraZeneca-CH-00920361A

PATIENT
  Sex: Female
  Weight: 78.471 kg

DRUGS (1)
  1. OLAPARIB [Suspect]
     Active Substance: OLAPARIB
     Indication: Fallopian tube cancer
     Dosage: 300 MILLIGRAM, BID

REACTIONS (4)
  - Neuropathy peripheral [Unknown]
  - Secretion discharge [Unknown]
  - Constipation [Unknown]
  - Platelet disorder [Unknown]
